FAERS Safety Report 8888027 (Version 1)
Quarter: 2012Q4

REPORT INFORMATION
  Report Type: Spontaneous
  Country: JP (occurrence: None)
  Receive Date: 20121031
  Receipt Date: 20121031
  Transmission Date: 20130627
  Serious: Yes (Death, Other)
  Sender: FDA-Public Use
  Company Number: DSA_60335_2012

PATIENT
  Age: 58 Year
  Sex: Male

DRUGS (5)
  1. FLUOROURACIL [Suspect]
     Indication: LIP AND/OR ORAL CAVITY CANCER
     Dosage: (DF)
     Dates: start: 200806
  2. DOCETAXEL [Suspect]
     Indication: LIP AND/OR ORAL CAVITY CANCER
     Dosage: (DF)
     Dates: start: 200806
  3. LEUCOVORIN [Concomitant]
  4. THERAPEUTIC RADIOPHARMACEUTICALS [Concomitant]
  5. CISPLATIN [Suspect]
     Dates: start: 200806

REACTIONS (2)
  - Bone marrow failure [None]
  - Respiratory disorder [None]
